FAERS Safety Report 9639987 (Version 4)
Quarter: 2016Q2

REPORT INFORMATION
  Report Type: Report from Study
  Country: BR (occurrence: BR)
  Receive Date: 20131023
  Receipt Date: 20160617
  Transmission Date: 20160815
  Serious: Yes (Hospitalization, Other)
  Sender: FDA-Public Use
  Company Number: BR-ABBVIE-13P-020-1074660-00

PATIENT
  Age: 59 Year
  Sex: Female
  Weight: 86 kg

DRUGS (32)
  1. SPIRIDON [Concomitant]
     Indication: HYPERTENSION
     Route: 048
     Dates: start: 2008
  2. TEOLONG [Concomitant]
     Indication: LUNG DISORDER
     Route: 048
     Dates: start: 201210
  3. LOSARTAN. [Concomitant]
     Active Substance: LOSARTAN
     Indication: BLOOD PRESSURE ABNORMAL
     Route: 048
  4. DIAZEPAM. [Concomitant]
     Active Substance: DIAZEPAM
     Indication: MENTAL DISORDER
     Route: 048
     Dates: start: 1972
  5. AEROGOLD [Concomitant]
     Indication: BRONCHITIS
     Dosage: ONCE, WHEN NEEDED
     Route: 055
     Dates: start: 1982
  6. RISPERIDONE. [Concomitant]
     Active Substance: RISPERIDONE
     Indication: CARDIAC DISORDER
     Route: 048
     Dates: start: 2014
  7. CLENIL A [Concomitant]
     Active Substance: BECLOMETHASONE DIPROPIONATE
     Indication: BRONCHITIS
     Dosage: TWICE, WHEN NEEDED
     Route: 055
     Dates: start: 1982
  8. METICORTEN [Concomitant]
     Active Substance: PREDNISONE
     Indication: BRONCHITIS
     Route: 048
     Dates: start: 1988
  9. METICORTEN [Concomitant]
     Active Substance: PREDNISONE
     Indication: RHEUMATOID ARTHRITIS
     Route: 048
     Dates: start: 1978
  10. PREDNISONE. [Concomitant]
     Active Substance: PREDNISONE
     Indication: RHEUMATOID ARTHRITIS
     Route: 048
     Dates: start: 1974
  11. PREDNISONE. [Concomitant]
     Active Substance: PREDNISONE
     Indication: PAIN
  12. OMEPRAZOLE. [Concomitant]
     Active Substance: OMEPRAZOLE
     Route: 048
  13. PREDNISONE. [Concomitant]
     Active Substance: PREDNISONE
     Indication: BRONCHITIS
     Route: 048
     Dates: start: 1988
  14. LOSARTAN. [Concomitant]
     Active Substance: LOSARTAN
     Indication: BLOOD PRESSURE MANAGEMENT
     Route: 048
     Dates: start: 201505
  15. AAS [Concomitant]
     Active Substance: ASPIRIN
     Indication: ANALGESIC THERAPY
     Route: 048
     Dates: start: 2006
  16. FLUOXETINE [Concomitant]
     Active Substance: FLUOXETINE HYDROCHLORIDE
     Indication: DEPRESSION
     Route: 048
     Dates: start: 2015
  17. OMEPRAZOLE. [Concomitant]
     Active Substance: OMEPRAZOLE
     Indication: ABDOMINAL HERNIA
     Route: 048
     Dates: start: 1988
  18. NIMESULIDE [Concomitant]
     Active Substance: NIMESULIDE
     Indication: CHEST PAIN
     Route: 048
     Dates: start: 2003
  19. OMEPRAZOLE. [Concomitant]
     Active Substance: OMEPRAZOLE
     Indication: GASTRITIS
     Route: 048
     Dates: start: 1974
  20. DIURETIC [Concomitant]
     Active Substance: UNSPECIFIED INGREDIENT
     Indication: BLOOD PRESSURE ABNORMAL
     Route: 048
     Dates: start: 2003
  21. HUMIRA [Suspect]
     Active Substance: ADALIMUMAB
     Indication: RHEUMATOID ARTHRITIS
     Route: 058
     Dates: start: 20090227, end: 201307
  22. HUMIRA [Suspect]
     Active Substance: ADALIMUMAB
     Route: 058
  23. METHOTREXATE [Concomitant]
     Active Substance: METHOTREXATE
     Indication: RHEUMATOID ARTHRITIS
     Route: 048
  24. CHLOROQUINE. [Concomitant]
     Active Substance: CHLOROQUINE
     Indication: RHEUMATOID ARTHRITIS
     Route: 048
     Dates: start: 1988
  25. PREDNISONE. [Concomitant]
     Active Substance: PREDNISONE
     Indication: ASTHMA
     Route: 048
     Dates: start: 1982
  26. DIGOXIN. [Concomitant]
     Active Substance: DIGOXIN
     Indication: HYPERTENSION
     Route: 048
     Dates: start: 2008
  27. ARAVA [Concomitant]
     Active Substance: LEFLUNOMIDE
     Indication: RHEUMATOID ARTHRITIS
     Route: 048
     Dates: start: 2014
  28. HYDROXYZINE [Concomitant]
     Active Substance: HYDROXYZINE\HYDROXYZINE HYDROCHLORIDE
     Indication: CARDIAC DISORDER
     Route: 048
  29. AAS [Concomitant]
     Active Substance: ASPIRIN
     Indication: ANTICOAGULANT THERAPY
     Route: 048
     Dates: start: 2003
  30. OMEPRAZOLE. [Concomitant]
     Active Substance: OMEPRAZOLE
     Indication: ABDOMINAL HERNIA
     Route: 048
  31. AEROLIN [Concomitant]
     Active Substance: ALBUTEROL
     Indication: BRONCHITIS
     Dosage: TWICE, WHEN NEEDED
     Route: 055
     Dates: start: 1982
  32. GABANEURIN [Concomitant]
     Active Substance: GABAPENTIN
     Indication: PAIN
     Route: 048
     Dates: start: 201512

REACTIONS (12)
  - Pneumonia [Recovered/Resolved]
  - Rheumatic disorder [Unknown]
  - Rheumatic disorder [Unknown]
  - Pharyngitis [Not Recovered/Not Resolved]
  - Immune system disorder [Not Recovered/Not Resolved]
  - Rheumatic disorder [Unknown]
  - Dyspnoea [Not Recovered/Not Resolved]
  - Bronchitis chronic [Unknown]
  - Device dislocation [Not Recovered/Not Resolved]
  - Muscle atrophy [Not Recovered/Not Resolved]
  - Arthralgia [Not Recovered/Not Resolved]
  - Hiatus hernia [Not Recovered/Not Resolved]

NARRATIVE: CASE EVENT DATE: 2009
